FAERS Safety Report 5628707-9 (Version None)
Quarter: 2008Q1

REPORT INFORMATION
  Report Type: 
  Country: None (occurrence: None)
  Receive Date: 20080215
  Receipt Date: 20080215
  Transmission Date: 20080703
  Serious: Yes (Other)
  Sender: FDA-Public Use
  Company Number: None

PATIENT
  Sex: Female
  Weight: 47.6277 kg

DRUGS (1)
  1. TRANSDERM SCOP [Suspect]
     Indication: MOTION SICKNESS
     Dosage: 1.5MG Q72H TRANSDERMA
     Route: 062
     Dates: start: 20071231, end: 20080105

REACTIONS (5)
  - AMNESIA [None]
  - COUGH [None]
  - DYSPNOEA EXERTIONAL [None]
  - NONSPECIFIC REACTION [None]
  - OCULAR HYPERAEMIA [None]
